FAERS Safety Report 8464204 (Version 11)
Quarter: 2014Q3

REPORT INFORMATION
  Report Type: Report from Study
  Country: PL (occurrence: PL)
  Receive Date: 20120316
  Receipt Date: 20140811
  Transmission Date: 20150326
  Serious: Yes (Hospitalization, Other)
  Sender: FDA-Public Use
  Company Number: PL-ROCHE-1041227

PATIENT
  Age: 60 Year
  Sex: Male
  Weight: 84.6 kg

DRUGS (28)
  1. METHOXY POLYETHYLENE GLYCOL-EPOETIN BETA [Suspect]
     Active Substance: PEGZEREPOETIN ALFA
     Indication: NEPHROGENIC ANAEMIA
     Route: 042
     Dates: start: 20111005
  2. SIMVASTATIN. [Concomitant]
     Active Substance: SIMVASTATIN
     Route: 065
     Dates: start: 20051123
  3. OMEPRAZOLE. [Concomitant]
     Active Substance: OMEPRAZOLE
     Route: 065
     Dates: start: 20070917
  4. METHOXY POLYETHYLENE GLYCOL-EPOETIN BETA [Suspect]
     Active Substance: PEGZEREPOETIN ALFA
     Route: 042
     Dates: start: 20130708
  5. ALLOPURINOL. [Concomitant]
     Active Substance: ALLOPURINOL
     Route: 065
     Dates: start: 20051123
  6. ACETYLSALICYLIC ACID [Concomitant]
     Active Substance: ASPIRIN
     Route: 065
     Dates: start: 20060522
  7. CINACALCET HYDROCHLORIDE [Concomitant]
     Active Substance: CINACALCET HYDROCHLORIDE
     Route: 065
     Dates: start: 20111017
  8. DIMETICON [Concomitant]
     Route: 065
     Dates: start: 20100816
  9. TAMSULOSIN [Concomitant]
     Active Substance: TAMSULOSIN
     Route: 065
     Dates: start: 20100212
  10. PROPAFENONE HYDROCHLORIDE. [Concomitant]
     Active Substance: PROPAFENONE HYDROCHLORIDE
     Route: 065
     Dates: start: 20130211
  11. METHOXY POLYETHYLENE GLYCOL-EPOETIN BETA [Suspect]
     Active Substance: PEGZEREPOETIN ALFA
     Route: 042
     Dates: start: 20120604
  12. INSULIN HUMAN [Concomitant]
     Active Substance: INSULIN HUMAN
     Route: 065
     Dates: start: 20051023
  13. DIOSMINE [Concomitant]
     Active Substance: HESPERIDIN
     Route: 065
     Dates: start: 20100322
  14. CALCIUM CARBONATE. [Concomitant]
     Active Substance: CALCIUM CARBONATE
     Route: 065
     Dates: start: 20070917
  15. ALPHACALCIDOL [Concomitant]
     Route: 065
     Dates: start: 20060422
  16. ALUMINIUM HYDROXIDE [Concomitant]
     Active Substance: ALUMINUM HYDROXIDE
     Route: 065
     Dates: start: 20100203
  17. ACETYLCYSTEINE. [Concomitant]
     Active Substance: ACETYLCYSTEINE
     Route: 065
     Dates: start: 20100521
  18. TEMISARTAN [Concomitant]
     Route: 065
     Dates: start: 20130501
  19. DIOSMIN [Concomitant]
     Active Substance: DIOSMIN
     Dosage: MICRONISED, BEFORE RAMDOMISATION
     Route: 065
  20. HELICID [Concomitant]
     Route: 065
     Dates: start: 20070917
  21. FUROSEMIDE. [Concomitant]
     Active Substance: FUROSEMIDE
     Route: 065
     Dates: start: 20051123
  22. FOLIC ACID. [Concomitant]
     Active Substance: FOLIC ACID
     Route: 065
     Dates: start: 20110114
  23. ETAMSYLATE [Concomitant]
     Active Substance: ETHAMSYLATE
     Route: 065
     Dates: start: 20080619
  24. METHOXY POLYETHYLENE GLYCOL-EPOETIN BETA [Suspect]
     Active Substance: PEGZEREPOETIN ALFA
     Route: 042
     Dates: start: 20120507
  25. ISOPHANE INSULIN [Concomitant]
     Active Substance: INSULIN NOS
     Dosage: 46J DAILY
     Route: 065
     Dates: start: 20051123
  26. CYANOCOBALAMIN. [Concomitant]
     Active Substance: CYANOCOBALAMIN
     Route: 065
     Dates: start: 20100203
  27. DROTAVERINE [Concomitant]
     Active Substance: DROTAVERINE
     Route: 065
     Dates: start: 20100816
  28. CINACALCET [Concomitant]
     Active Substance: CINACALCET
     Route: 065
     Dates: start: 20121221

REACTIONS (3)
  - Pelvic abscess [Recovered/Resolved]
  - Pyrexia [Recovered/Resolved]
  - Rectal adenocarcinoma [Not Recovered/Not Resolved]

NARRATIVE: CASE EVENT DATE: 20120215
